FAERS Safety Report 6814600-2 (Version None)
Quarter: 2010Q2

REPORT INFORMATION
  Report Type: 
  Country: None (occurrence: None)
  Receive Date: 20100629
  Receipt Date: 20100614
  Transmission Date: 20101027
  Serious: Yes (Other)
  Sender: FDA-Public Use
  Company Number: CA-1182342

PATIENT
  Age: 51 Year
  Sex: Male

DRUGS (4)
  1. FLUORESCITE [Suspect]
     Dosage: 5 ML 1X
     Route: 042
     Dates: start: 20100323, end: 20100323
  2. METFORMIN HCL [Concomitant]
  3. INSULIN (INSULIN) [Concomitant]
  4. LIPITOR [Concomitant]

REACTIONS (4)
  - HYPERHIDROSIS [None]
  - HYPOTENSION [None]
  - PALLOR [None]
  - SYNCOPE [None]
